FAERS Safety Report 17449982 (Version 1)
Quarter: 2020Q1

REPORT INFORMATION
  Report Type: Spontaneous
  Country: US (occurrence: US)
  Receive Date: 20200207
  Receipt Date: 20200207
  Transmission Date: 20200409
  Serious: Yes (Other)
  Sender: FDA-Public Use
  Company Number: None

PATIENT
  Age: 29 Year
  Sex: Female
  Weight: 263 kg

DRUGS (1)
  1. BUPRENORPHINE HCL-NALOXON E HCL 8-2MG TABLETS [Suspect]
     Active Substance: BUPRENORPHINE HYDROCHLORIDE\NALOXONE HYDROCHLORIDE
     Indication: DRUG WITHDRAWAL SYNDROME
     Dosage: ?          OTHER STRENGTH:8-2 MG;OTHER DOSE:8-2 MG;?
     Route: 048
     Dates: start: 20200120, end: 20200206

REACTIONS (5)
  - Diarrhoea [None]
  - Vomiting [None]
  - Product dosage form issue [None]
  - Adverse event [None]
  - Nausea [None]

NARRATIVE: CASE EVENT DATE: 20200122
